FAERS Safety Report 4761754-8 (Version None)
Quarter: 2005Q3

REPORT INFORMATION
  Report Type: 
  Country: None (occurrence: None)
  Receive Date: 20050906
  Receipt Date: 20050822
  Transmission Date: 20060218
  Serious: Yes (Other)
  Sender: FDA-Public Use
  Company Number: PHFR2005GB02833

PATIENT
  Age: 40 Year
  Sex: Female
  Weight: 60 kg

DRUGS (9)
  1. METHOTREXATE [Suspect]
     Indication: RHEUMATOID ARTHRITIS
     Dosage: 25MG/DAY
     Route: 058
  2. HYDROXYCHLOROQUINE SULFATE [Suspect]
     Indication: RHEUMATOID ARTHRITIS
     Dosage: 200MG/DAY
     Route: 048
  3. ENBREL [Suspect]
     Indication: PSORIATIC ARTHROPATHY
     Dosage: 25 MG TWICE A WEEK
     Route: 058
     Dates: start: 20041210
  4. DIHYDROCODEINE (NGX) [Suspect]
     Route: 048
  5. CITALOPRAM (NGX) [Suspect]
     Route: 065
  6. FOLIC ACID (NGX) [Suspect]
     Route: 065
  7. CLOPIDOGREL BISULFATE [Suspect]
  8. ORAL CONTRACEPTIVE NOS [Suspect]
     Route: 048
  9. DICLOFENAC [Suspect]
     Dosage: 75MG/DAY
     Route: 065

REACTIONS (1)
  - GALACTORRHOEA [None]
